FAERS Safety Report 14595415 (Version 1)
Quarter: 2018Q1

REPORT INFORMATION
  Report Type: Spontaneous
  Country: DE (occurrence: DE)
  Receive Date: 20180302
  Receipt Date: 20180302
  Transmission Date: 20180509
  Serious: Yes (Other)
  Sender: FDA-Public Use
  Company Number: DE-BIOGEN-2018BI00534661

PATIENT
  Age: 17 Year
  Sex: Male
  Weight: 65 kg

DRUGS (1)
  1. TYSABRI [Suspect]
     Active Substance: NATALIZUMAB
     Indication: MULTIPLE SCLEROSIS
     Route: 042
     Dates: start: 20171124, end: 20171124

REACTIONS (5)
  - Anaphylactic reaction [Recovered/Resolved]
  - Hypersensitivity [Recovered/Resolved]
  - Cold sweat [Recovered/Resolved]
  - Dizziness [Recovered/Resolved]
  - Blood pressure decreased [Recovered/Resolved]

NARRATIVE: CASE EVENT DATE: 20171124
